FAERS Safety Report 16913509 (Version 2)
Quarter: 2025Q1

REPORT INFORMATION
  Report Type: Spontaneous
  Country: CA (occurrence: CA)
  Receive Date: 20191014
  Receipt Date: 20250312
  Transmission Date: 20250408
  Serious: Yes (Hospitalization, Other)
  Sender: MYLAN
  Company Number: CA-PFIZER INC-2019437956

PATIENT
  Age: 68 Year
  Sex: Female
  Weight: 95 kg

DRUGS (164)
  1. LIPITOR [Suspect]
     Active Substance: ATORVASTATIN CALCIUM
     Indication: Product used for unknown indication
     Route: 065
  2. LIPITOR [Suspect]
     Active Substance: ATORVASTATIN CALCIUM
  3. LIPITOR [Suspect]
     Active Substance: ATORVASTATIN CALCIUM
  4. LIPITOR [Suspect]
     Active Substance: ATORVASTATIN CALCIUM
     Route: 065
  5. LIPITOR [Suspect]
     Active Substance: ATORVASTATIN CALCIUM
     Route: 065
  6. LIPITOR [Suspect]
     Active Substance: ATORVASTATIN CALCIUM
  7. LIPITOR [Suspect]
     Active Substance: ATORVASTATIN CALCIUM
  8. LIPITOR [Suspect]
     Active Substance: ATORVASTATIN CALCIUM
     Route: 065
  9. LIPITOR [Suspect]
     Active Substance: ATORVASTATIN CALCIUM
  10. LIPITOR [Suspect]
     Active Substance: ATORVASTATIN CALCIUM
  11. LIPITOR [Suspect]
     Active Substance: ATORVASTATIN CALCIUM
     Route: 065
  12. LIPITOR [Suspect]
     Active Substance: ATORVASTATIN CALCIUM
     Route: 065
  13. LIPITOR [Suspect]
     Active Substance: ATORVASTATIN CALCIUM
  14. LIPITOR [Suspect]
     Active Substance: ATORVASTATIN CALCIUM
  15. LIPITOR [Suspect]
     Active Substance: ATORVASTATIN CALCIUM
     Route: 065
  16. LIPITOR [Suspect]
     Active Substance: ATORVASTATIN CALCIUM
     Route: 065
  17. ACTEMRA [Suspect]
     Active Substance: TOCILIZUMAB
     Indication: Rheumatoid arthritis
  18. ACTEMRA [Suspect]
     Active Substance: TOCILIZUMAB
  19. ACTEMRA [Suspect]
     Active Substance: TOCILIZUMAB
     Route: 042
  20. ACTEMRA [Suspect]
     Active Substance: TOCILIZUMAB
     Route: 042
  21. ACTEMRA [Suspect]
     Active Substance: TOCILIZUMAB
     Route: 042
  22. ACTEMRA [Suspect]
     Active Substance: TOCILIZUMAB
     Route: 042
  23. ACTEMRA [Suspect]
     Active Substance: TOCILIZUMAB
  24. ACTEMRA [Suspect]
     Active Substance: TOCILIZUMAB
  25. ACTEMRA [Suspect]
     Active Substance: TOCILIZUMAB
  26. ACTEMRA [Suspect]
     Active Substance: TOCILIZUMAB
  27. ACTEMRA [Suspect]
     Active Substance: TOCILIZUMAB
     Route: 042
  28. ACTEMRA [Suspect]
     Active Substance: TOCILIZUMAB
     Route: 042
  29. ACTEMRA [Suspect]
     Active Substance: TOCILIZUMAB
     Route: 042
  30. ACTEMRA [Suspect]
     Active Substance: TOCILIZUMAB
  31. ACTEMRA [Suspect]
     Active Substance: TOCILIZUMAB
  32. ACTEMRA [Suspect]
     Active Substance: TOCILIZUMAB
     Route: 042
  33. ACTEMRA [Suspect]
     Active Substance: TOCILIZUMAB
     Route: 042
  34. ACTEMRA [Suspect]
     Active Substance: TOCILIZUMAB
     Route: 042
  35. ACTEMRA [Suspect]
     Active Substance: TOCILIZUMAB
  36. ACTEMRA [Suspect]
     Active Substance: TOCILIZUMAB
  37. NADOLOL [Suspect]
     Active Substance: NADOLOL
     Indication: Product used for unknown indication
  38. NADOLOL [Suspect]
     Active Substance: NADOLOL
  39. NADOLOL [Suspect]
     Active Substance: NADOLOL
     Route: 065
  40. NADOLOL [Suspect]
     Active Substance: NADOLOL
     Route: 065
  41. NADOLOL [Suspect]
     Active Substance: NADOLOL
  42. NADOLOL [Suspect]
     Active Substance: NADOLOL
  43. NADOLOL [Suspect]
     Active Substance: NADOLOL
     Route: 065
  44. NADOLOL [Suspect]
     Active Substance: NADOLOL
     Route: 065
  45. PERINDOPRIL [Suspect]
     Active Substance: PERINDOPRIL
     Indication: Product used for unknown indication
  46. PERINDOPRIL [Suspect]
     Active Substance: PERINDOPRIL
     Route: 065
  47. PERINDOPRIL [Suspect]
     Active Substance: PERINDOPRIL
     Route: 065
  48. PERINDOPRIL [Suspect]
     Active Substance: PERINDOPRIL
  49. PERINDOPRIL [Suspect]
     Active Substance: PERINDOPRIL
     Indication: Product used for unknown indication
  50. PERINDOPRIL [Suspect]
     Active Substance: PERINDOPRIL
     Route: 065
  51. PERINDOPRIL [Suspect]
     Active Substance: PERINDOPRIL
     Route: 065
  52. PERINDOPRIL [Suspect]
     Active Substance: PERINDOPRIL
  53. ELIQUIS [Suspect]
     Active Substance: APIXABAN
     Indication: Anticoagulant therapy
     Dosage: 5 MILLIGRAM, BID (2 EVERY 1 DAYS)
  54. ELIQUIS [Suspect]
     Active Substance: APIXABAN
     Dosage: 5 MILLIGRAM, BID (2 EVERY 1 DAYS)
     Route: 048
  55. ELIQUIS [Suspect]
     Active Substance: APIXABAN
     Dosage: 5 MILLIGRAM, BID (2 EVERY 1 DAYS)
     Route: 048
  56. ELIQUIS [Suspect]
     Active Substance: APIXABAN
     Dosage: 5 MILLIGRAM, BID (2 EVERY 1 DAYS)
  57. NADOLOL [Suspect]
     Active Substance: NADOLOL
     Indication: Product used for unknown indication
  58. NADOLOL [Suspect]
     Active Substance: NADOLOL
     Route: 065
  59. NADOLOL [Suspect]
     Active Substance: NADOLOL
     Route: 065
  60. NADOLOL [Suspect]
     Active Substance: NADOLOL
  61. NADOLOL [Suspect]
     Active Substance: NADOLOL
     Indication: Product used for unknown indication
  62. NADOLOL [Suspect]
     Active Substance: NADOLOL
     Route: 065
  63. NADOLOL [Suspect]
     Active Substance: NADOLOL
     Route: 065
  64. NADOLOL [Suspect]
     Active Substance: NADOLOL
  65. CALCIUM [Concomitant]
     Active Substance: CALCIUM
     Indication: Product used for unknown indication
  66. CALCIUM [Concomitant]
     Active Substance: CALCIUM
     Route: 065
  67. CALCIUM [Concomitant]
     Active Substance: CALCIUM
     Route: 065
  68. CALCIUM [Concomitant]
     Active Substance: CALCIUM
  69. CHOLECALCIFEROL [Concomitant]
     Active Substance: CHOLECALCIFEROL
     Indication: Product used for unknown indication
  70. CHOLECALCIFEROL [Concomitant]
     Active Substance: CHOLECALCIFEROL
  71. CHOLECALCIFEROL [Concomitant]
     Active Substance: CHOLECALCIFEROL
     Route: 065
  72. CHOLECALCIFEROL [Concomitant]
     Active Substance: CHOLECALCIFEROL
     Route: 065
  73. CHOLECALCIFEROL [Concomitant]
     Active Substance: CHOLECALCIFEROL
  74. CHOLECALCIFEROL [Concomitant]
     Active Substance: CHOLECALCIFEROL
  75. CHOLECALCIFEROL [Concomitant]
     Active Substance: CHOLECALCIFEROL
     Route: 065
  76. CHOLECALCIFEROL [Concomitant]
     Active Substance: CHOLECALCIFEROL
     Route: 065
  77. COZAAR [Concomitant]
     Active Substance: LOSARTAN POTASSIUM
     Indication: Product used for unknown indication
  78. COZAAR [Concomitant]
     Active Substance: LOSARTAN POTASSIUM
  79. COZAAR [Concomitant]
     Active Substance: LOSARTAN POTASSIUM
     Route: 065
  80. COZAAR [Concomitant]
     Active Substance: LOSARTAN POTASSIUM
     Route: 065
  81. COZAAR [Concomitant]
     Active Substance: LOSARTAN POTASSIUM
  82. COZAAR [Concomitant]
     Active Substance: LOSARTAN POTASSIUM
  83. COZAAR [Concomitant]
     Active Substance: LOSARTAN POTASSIUM
     Route: 065
  84. COZAAR [Concomitant]
     Active Substance: LOSARTAN POTASSIUM
     Route: 065
  85. DELATESTRYL [Concomitant]
     Active Substance: TESTOSTERONE ENANTHATE
     Indication: Product used for unknown indication
  86. DELATESTRYL [Concomitant]
     Active Substance: TESTOSTERONE ENANTHATE
  87. DELATESTRYL [Concomitant]
     Active Substance: TESTOSTERONE ENANTHATE
     Route: 065
  88. DELATESTRYL [Concomitant]
     Active Substance: TESTOSTERONE ENANTHATE
     Route: 065
  89. DELATESTRYL [Concomitant]
     Active Substance: TESTOSTERONE ENANTHATE
  90. DELATESTRYL [Concomitant]
     Active Substance: TESTOSTERONE ENANTHATE
  91. DELATESTRYL [Concomitant]
     Active Substance: TESTOSTERONE ENANTHATE
     Route: 065
  92. DELATESTRYL [Concomitant]
     Active Substance: TESTOSTERONE ENANTHATE
     Route: 065
  93. DELATESTRYL [Concomitant]
     Active Substance: TESTOSTERONE ENANTHATE
  94. DELATESTRYL [Concomitant]
     Active Substance: TESTOSTERONE ENANTHATE
     Route: 030
  95. DELATESTRYL [Concomitant]
     Active Substance: TESTOSTERONE ENANTHATE
  96. DELATESTRYL [Concomitant]
     Active Substance: TESTOSTERONE ENANTHATE
     Route: 030
  97. EFFEXOR XR [Concomitant]
     Active Substance: VENLAFAXINE HYDROCHLORIDE
     Indication: Product used for unknown indication
  98. EFFEXOR XR [Concomitant]
     Active Substance: VENLAFAXINE HYDROCHLORIDE
     Route: 065
  99. EFFEXOR XR [Concomitant]
     Active Substance: VENLAFAXINE HYDROCHLORIDE
     Route: 065
  100. EFFEXOR XR [Concomitant]
     Active Substance: VENLAFAXINE HYDROCHLORIDE
  101. ESTRADIOL [Concomitant]
     Active Substance: ESTRADIOL
     Indication: Product used for unknown indication
  102. ESTRADIOL [Concomitant]
     Active Substance: ESTRADIOL
  103. ESTRADIOL [Concomitant]
     Active Substance: ESTRADIOL
     Route: 065
  104. ESTRADIOL [Concomitant]
     Active Substance: ESTRADIOL
     Route: 065
  105. ESTRADIOL [Concomitant]
     Active Substance: ESTRADIOL
  106. ESTRADIOL [Concomitant]
     Active Substance: ESTRADIOL
  107. ESTRADIOL [Concomitant]
     Active Substance: ESTRADIOL
     Route: 065
  108. ESTRADIOL [Concomitant]
     Active Substance: ESTRADIOL
     Route: 065
  109. FUROSEMIDE [Concomitant]
     Active Substance: FUROSEMIDE
     Indication: Product used for unknown indication
  110. FUROSEMIDE [Concomitant]
     Active Substance: FUROSEMIDE
  111. FUROSEMIDE [Concomitant]
     Active Substance: FUROSEMIDE
     Route: 065
  112. FUROSEMIDE [Concomitant]
     Active Substance: FUROSEMIDE
     Route: 065
  113. FUROSEMIDE [Concomitant]
     Active Substance: FUROSEMIDE
  114. FUROSEMIDE [Concomitant]
     Active Substance: FUROSEMIDE
  115. FUROSEMIDE [Concomitant]
     Active Substance: FUROSEMIDE
     Route: 065
  116. FUROSEMIDE [Concomitant]
     Active Substance: FUROSEMIDE
     Route: 065
  117. SYNTHROID [Concomitant]
     Active Substance: LEVOTHYROXINE SODIUM
     Indication: Product used for unknown indication
  118. SYNTHROID [Concomitant]
     Active Substance: LEVOTHYROXINE SODIUM
     Route: 065
  119. SYNTHROID [Concomitant]
     Active Substance: LEVOTHYROXINE SODIUM
     Route: 065
  120. SYNTHROID [Concomitant]
     Active Substance: LEVOTHYROXINE SODIUM
  121. TYLENOL [Concomitant]
     Active Substance: ACETAMINOPHEN
     Indication: Product used for unknown indication
  122. TYLENOL [Concomitant]
     Active Substance: ACETAMINOPHEN
     Route: 065
  123. TYLENOL [Concomitant]
     Active Substance: ACETAMINOPHEN
     Route: 065
  124. TYLENOL [Concomitant]
     Active Substance: ACETAMINOPHEN
  125. VENLAFAXINE HYDROCHLORIDE [Concomitant]
     Active Substance: VENLAFAXINE HYDROCHLORIDE
     Indication: Product used for unknown indication
  126. VENLAFAXINE HYDROCHLORIDE [Concomitant]
     Active Substance: VENLAFAXINE HYDROCHLORIDE
     Route: 065
  127. VENLAFAXINE HYDROCHLORIDE [Concomitant]
     Active Substance: VENLAFAXINE HYDROCHLORIDE
     Route: 065
  128. VENLAFAXINE HYDROCHLORIDE [Concomitant]
     Active Substance: VENLAFAXINE HYDROCHLORIDE
  129. XANAX [Concomitant]
     Active Substance: ALPRAZOLAM
     Indication: Product used for unknown indication
  130. XANAX [Concomitant]
     Active Substance: ALPRAZOLAM
  131. XANAX [Concomitant]
     Active Substance: ALPRAZOLAM
     Route: 065
  132. XANAX [Concomitant]
     Active Substance: ALPRAZOLAM
     Route: 065
  133. XANAX [Concomitant]
     Active Substance: ALPRAZOLAM
  134. XANAX [Concomitant]
     Active Substance: ALPRAZOLAM
  135. XANAX [Concomitant]
     Active Substance: ALPRAZOLAM
     Route: 065
  136. XANAX [Concomitant]
     Active Substance: ALPRAZOLAM
     Route: 065
  137. ZOCOR [Concomitant]
     Active Substance: SIMVASTATIN
     Indication: Product used for unknown indication
  138. ZOCOR [Concomitant]
     Active Substance: SIMVASTATIN
  139. ZOCOR [Concomitant]
     Active Substance: SIMVASTATIN
     Route: 065
  140. ZOCOR [Concomitant]
     Active Substance: SIMVASTATIN
     Route: 065
  141. ZOCOR [Concomitant]
     Active Substance: SIMVASTATIN
  142. ZOCOR [Concomitant]
     Active Substance: SIMVASTATIN
  143. ZOCOR [Concomitant]
     Active Substance: SIMVASTATIN
     Route: 065
  144. ZOCOR [Concomitant]
     Active Substance: SIMVASTATIN
     Route: 065
  145. VITAMIN K [Concomitant]
     Active Substance: PHYTONADIONE
     Indication: Product used for unknown indication
  146. VITAMIN K [Concomitant]
     Active Substance: PHYTONADIONE
     Route: 065
  147. VITAMIN K [Concomitant]
     Active Substance: PHYTONADIONE
     Route: 065
  148. VITAMIN K [Concomitant]
     Active Substance: PHYTONADIONE
  149. VITAMIN D3 [Concomitant]
     Active Substance: CHOLECALCIFEROL
     Indication: Product used for unknown indication
  150. VITAMIN D3 [Concomitant]
     Active Substance: CHOLECALCIFEROL
     Route: 065
  151. VITAMIN D3 [Concomitant]
     Active Substance: CHOLECALCIFEROL
     Route: 065
  152. VITAMIN D3 [Concomitant]
     Active Substance: CHOLECALCIFEROL
  153. VALSARTAN [Concomitant]
     Active Substance: VALSARTAN
     Indication: Product used for unknown indication
  154. VALSARTAN [Concomitant]
     Active Substance: VALSARTAN
     Route: 065
  155. VALSARTAN [Concomitant]
     Active Substance: VALSARTAN
     Route: 065
  156. VALSARTAN [Concomitant]
     Active Substance: VALSARTAN
  157. ROSUVASTATIN CALCIUM [Concomitant]
     Active Substance: ROSUVASTATIN CALCIUM
     Indication: Blood cholesterol
  158. ROSUVASTATIN CALCIUM [Concomitant]
     Active Substance: ROSUVASTATIN CALCIUM
     Route: 065
  159. ROSUVASTATIN CALCIUM [Concomitant]
     Active Substance: ROSUVASTATIN CALCIUM
     Route: 065
  160. ROSUVASTATIN CALCIUM [Concomitant]
     Active Substance: ROSUVASTATIN CALCIUM
  161. EZETIMIBE [Concomitant]
     Active Substance: EZETIMIBE
     Indication: Product used for unknown indication
  162. EZETIMIBE [Concomitant]
     Active Substance: EZETIMIBE
     Route: 065
  163. EZETIMIBE [Concomitant]
     Active Substance: EZETIMIBE
     Route: 065
  164. EZETIMIBE [Concomitant]
     Active Substance: EZETIMIBE

REACTIONS (72)
  - Abdominal pain [Not Recovered/Not Resolved]
  - Asthenia [Not Recovered/Not Resolved]
  - Atrial fibrillation [Not Recovered/Not Resolved]
  - Bacterial infection [Not Recovered/Not Resolved]
  - Blood pressure increased [Not Recovered/Not Resolved]
  - Bronchitis [Not Recovered/Not Resolved]
  - Bursitis [Not Recovered/Not Resolved]
  - Cardiac failure congestive [Not Recovered/Not Resolved]
  - Chest pain [Not Recovered/Not Resolved]
  - Contusion [Not Recovered/Not Resolved]
  - Cough [Not Recovered/Not Resolved]
  - Deep vein thrombosis [Not Recovered/Not Resolved]
  - Dysphonia [Not Recovered/Not Resolved]
  - Ear congestion [Not Recovered/Not Resolved]
  - Fungal infection [Not Recovered/Not Resolved]
  - Headache [Not Recovered/Not Resolved]
  - Heart rate decreased [Not Recovered/Not Resolved]
  - Heart rate irregular [Not Recovered/Not Resolved]
  - Inflammation [Not Recovered/Not Resolved]
  - Infusion related reaction [Not Recovered/Not Resolved]
  - Migraine [Not Recovered/Not Resolved]
  - Movement disorder [Not Recovered/Not Resolved]
  - Oral herpes [Not Recovered/Not Resolved]
  - Rectal haemorrhage [Not Recovered/Not Resolved]
  - Sciatica [Not Recovered/Not Resolved]
  - Stress [Not Recovered/Not Resolved]
  - Swelling [Not Recovered/Not Resolved]
  - Thyroid disorder [Not Recovered/Not Resolved]
  - Urinary tract infection [Not Recovered/Not Resolved]
  - Weight decreased [Not Recovered/Not Resolved]
  - Weight increased [Not Recovered/Not Resolved]
  - Aphthous ulcer [Not Recovered/Not Resolved]
  - Blood pressure diastolic abnormal [Not Recovered/Not Resolved]
  - Blood pressure fluctuation [Not Recovered/Not Resolved]
  - Blood pressure systolic abnormal [Not Recovered/Not Resolved]
  - Body temperature decreased [Not Recovered/Not Resolved]
  - Body temperature increased [Not Recovered/Not Resolved]
  - Burning sensation [Not Recovered/Not Resolved]
  - Cellulitis [Not Recovered/Not Resolved]
  - Dyspnoea [Not Recovered/Not Resolved]
  - Musculoskeletal pain [Recovering/Resolving]
  - Faeces discoloured [Not Recovered/Not Resolved]
  - Gait disturbance [Not Recovered/Not Resolved]
  - Gait inability [Not Recovered/Not Resolved]
  - Gastric ulcer [Not Recovered/Not Resolved]
  - Haemoglobin decreased [Not Recovered/Not Resolved]
  - Herpes zoster [Not Recovered/Not Resolved]
  - Irritable bowel syndrome [Not Recovered/Not Resolved]
  - Ligament sprain [Not Recovered/Not Resolved]
  - Micturition urgency [Not Recovered/Not Resolved]
  - Musculoskeletal chest pain [Not Recovered/Not Resolved]
  - Nasal congestion [Not Recovered/Not Resolved]
  - Oxygen saturation decreased [Not Recovered/Not Resolved]
  - Pain [Not Recovered/Not Resolved]
  - Peripheral swelling [Not Recovered/Not Resolved]
  - Sinusitis [Not Recovered/Not Resolved]
  - Ulcer haemorrhage [Not Recovered/Not Resolved]
  - Vaginal infection [Not Recovered/Not Resolved]
  - Weight fluctuation [Not Recovered/Not Resolved]
  - Blood pressure systolic increased [Not Recovered/Not Resolved]
  - Urticaria [Not Recovered/Not Resolved]
  - Arthralgia [Not Recovered/Not Resolved]
  - Nausea [Not Recovered/Not Resolved]
  - Back pain [Not Recovered/Not Resolved]
  - Rash [Not Recovered/Not Resolved]
  - Myalgia [Not Recovered/Not Resolved]
  - Fatigue [Not Recovered/Not Resolved]
  - Diarrhoea [Not Recovered/Not Resolved]
  - Pain in extremity [Not Recovered/Not Resolved]
  - Nasopharyngitis [Not Recovered/Not Resolved]
  - Epistaxis [Not Recovered/Not Resolved]
  - Off label use [Not Recovered/Not Resolved]
